FAERS Safety Report 8179193-9 (Version None)
Quarter: 2012Q1

REPORT INFORMATION
  Report Type: 
  Country: None (occurrence: None)
  Receive Date: 20120227
  Receipt Date: 20120213
  Transmission Date: 20120608
  Serious: Yes (Other)
  Sender: FDA-Public Use
  Company Number: E2B_00000159

PATIENT
  Age: 3 Day
  Sex: Female
  Weight: 3.37 kg

DRUGS (3)
  1. FOLASURE RATIOFARM (FOLIC ACID) [Concomitant]
  2. SERTRALINE HYDROCHLORIDE [Suspect]
     Indication: ANXIETY DISORDER
     Dosage: 100 MG, TRANSPLACENTAL, DOSAGE BETWEEN 50 AND 100 MG/D, TRANSPLACENTAL
     Route: 064
     Dates: start: 20091201
  3. SERTRALINE HYDROCHLORIDE [Suspect]
     Indication: ANXIETY DISORDER
     Dosage: 100 MG, TRANSPLACENTAL, DOSAGE BETWEEN 50 AND 100 MG/D, TRANSPLACENTAL
     Route: 064
     Dates: start: 20101120, end: 20110812

REACTIONS (4)
  - CAESAREAN SECTION [None]
  - MATERNAL DRUGS AFFECTING FOETUS [None]
  - PREMATURE RUPTURE OF MEMBRANES [None]
  - MYOCLONUS [None]
